FAERS Safety Report 6497515-1 (Version None)
Quarter: 2009Q4

REPORT INFORMATION
  Report Type: 
  Country: None (occurrence: None)
  Receive Date: 20091215
  Receipt Date: 20091207
  Transmission Date: 20100525
  Serious: Yes (Death, Other)
  Sender: FDA-Public Use
  Company Number: HQWYE043017DEC04

PATIENT
  Sex: Female

DRUGS (1)
  1. PREMPRO [Suspect]
     Indication: HORMONE REPLACEMENT THERAPY
     Dosage: UNSPECIFIED
     Route: 048
     Dates: start: 19980101, end: 20020601

REACTIONS (2)
  - BREAST CANCER [None]
  - BREAST HYPERPLASIA [None]
